FAERS Safety Report 9668074 (Version 1)
Quarter: 2013Q4

REPORT INFORMATION
  Report Type: Spontaneous
  Country: US (occurrence: None)
  Receive Date: 20131101
  Receipt Date: 20131101
  Transmission Date: 20140711
  Serious: Yes (Death, Life-Threatening)
  Sender: FDA-Public Use
  Company Number: DAV-AE-MTX-13-58

PATIENT
  Age: 66 Year
  Sex: Female

DRUGS (1)
  1. METHOTREXATE [Suspect]
     Indication: RHEUMATOID ARTHRITIS
     Dosage: SELF DOSING

REACTIONS (4)
  - Pancytopenia [None]
  - Ulcer [None]
  - Toxicity to various agents [None]
  - Intertrigo [None]
